FAERS Safety Report 14704584 (Version 1)
Quarter: 2018Q2

REPORT INFORMATION
  Report Type: Spontaneous
  Country: CH (occurrence: CH)
  Receive Date: 20180402
  Receipt Date: 20180402
  Transmission Date: 20180711
  Serious: Yes (Other)
  Sender: FDA-Public Use
  Company Number: CH-PFIZER INC-2018129285

PATIENT
  Age: 27 Year
  Sex: Male

DRUGS (6)
  1. TRANXILIUM [Concomitant]
     Active Substance: CLORAZEPATE DIPOTASSIUM
     Dosage: 5 MG PER DAY, IN RESERVE
  2. SOLIAN [Suspect]
     Active Substance: AMISULPRIDE
     Dosage: 500 MG, 1X/DAY
     Route: 048
     Dates: start: 2015, end: 2017
  3. SORTIS [Concomitant]
     Active Substance: ATORVASTATIN
     Dosage: 10 MG, 1X/DAY
  4. SOLIAN [Suspect]
     Active Substance: AMISULPRIDE
     Dosage: 300 MG, 1X/DAY
     Route: 048
     Dates: start: 2017
  5. SORTIS [Concomitant]
     Active Substance: ATORVASTATIN
     Dosage: 20 MG, DAILY
     Route: 048
     Dates: start: 20180309
  6. ZOLOFT [Suspect]
     Active Substance: SERTRALINE HYDROCHLORIDE
     Dosage: 75 MG, 1X/DAY, IN TITRATION
     Route: 048
     Dates: start: 201801

REACTIONS (2)
  - Amylase increased [Not Recovered/Not Resolved]
  - Blood triglycerides increased [Not Recovered/Not Resolved]

NARRATIVE: CASE EVENT DATE: 201711
